FAERS Safety Report 9249467 (Version 3)
Quarter: 2013Q3

REPORT INFORMATION
  Report Type: Spontaneous
  Country: US (occurrence: US)
  Receive Date: 20130423
  Receipt Date: 20130729
  Transmission Date: 20140515
  Serious: No
  Sender: FDA-Public Use
  Company Number: US-PFIZER INC-2013122145

PATIENT
  Age: 67 Year
  Sex: Female
  Weight: 71.66 kg

DRUGS (1)
  1. XELJANZ [Suspect]
     Indication: RHEUMATOID ARTHRITIS
     Dosage: 5 MG, 2X/DAY
     Route: 048
     Dates: start: 20130220

REACTIONS (4)
  - Fatigue [Unknown]
  - Balance disorder [Unknown]
  - Somnolence [Unknown]
  - Pain [Unknown]
